FAERS Safety Report 9245314 (Version 4)
Quarter: 2014Q2

REPORT INFORMATION
  Report Type: Spontaneous
  Country: JP (occurrence: JP)
  Receive Date: 20130422
  Receipt Date: 20140530
  Transmission Date: 20141212
  Serious: Yes (Hospitalization)
  Sender: FDA-Public Use
  Company Number: PHHY2013JP038571

PATIENT
  Age: 26 Year
  Sex: Female

DRUGS (4)
  1. CICLOSPORIN [Suspect]
     Indication: IMMUNOSUPPRESSANT DRUG THERAPY
  2. PREDNISOLONE [Suspect]
     Indication: SYSTEMIC LUPUS ERYTHEMATOSUS
     Dosage: 30 MG, UNK
  3. PREDNISOLONE [Suspect]
     Dosage: 50 MG, UNK
  4. CYCLOPHOSPHAMIDE [Suspect]
     Indication: IMMUNOSUPPRESSANT DRUG THERAPY
     Dosage: 500 MG/ 4 WEEKS
     Route: 042
     Dates: start: 201201, end: 201201

REACTIONS (10)
  - Alveolar proteinosis [Unknown]
  - Cough [Unknown]
  - Dyspnoea exertional [Unknown]
  - Malaise [Unknown]
  - Rales [Unknown]
  - Interstitial lung disease [Unknown]
  - Bronchopulmonary aspergillosis [Unknown]
  - Leukocytosis [Unknown]
  - Lymphopenia [Unknown]
  - Drug ineffective [Unknown]
